FAERS Safety Report 22006102 (Version 1)
Quarter: 2023Q1

REPORT INFORMATION
  Report Type: Spontaneous
  Country: US (occurrence: US)
  Receive Date: 20230217
  Receipt Date: 20230217
  Transmission Date: 20230417
  Serious: No
  Sender: FDA-Public Use
  Company Number: US-PFIZER INC-202300069701

PATIENT
  Age: 62 Year
  Sex: Female

DRUGS (5)
  1. IBRANCE [Suspect]
     Active Substance: PALBOCICLIB
     Dosage: 100 MG, CYCLIC (DAYS ON 1 THROUGH 21 THEN 7 DAYS OFF)
     Dates: start: 202008
  2. FASLODEX [Concomitant]
     Active Substance: FULVESTRANT
  3. LEVOTHYROXINE [Concomitant]
     Active Substance: LEVOTHYROXINE
  4. VITAMINS NOS [Concomitant]
     Active Substance: VITAMINS
  5. MOTRIN IB [Concomitant]
     Active Substance: IBUPROFEN

REACTIONS (2)
  - COVID-19 [Unknown]
  - Neutrophil count decreased [Unknown]
